FAERS Safety Report 15238563 (Version 1)
Quarter: 2018Q3

REPORT INFORMATION
  Report Type: Spontaneous
  Country: US (occurrence: US)
  Receive Date: 20180803
  Receipt Date: 20180803
  Transmission Date: 20181010
  Serious: No
  Sender: FDA-Public Use
  Company Number: US-IMPAX LABORATORIES, INC-2018-IPXL-01459

PATIENT
  Sex: Female

DRUGS (3)
  1. ALBENZA [Suspect]
     Active Substance: ALBENDAZOLE
     Indication: ENTEROBIASIS
     Dosage: 200 MG, (ONE TABLET TWICE A DAY FOR 1 DAY)
     Route: 048
     Dates: start: 20180321, end: 20180321
  2. ALBENZA [Suspect]
     Active Substance: ALBENDAZOLE
     Dosage: 200 MG (1 TABLET ON FRIDAY AND SECOND TABLET ON SATURDAY AFTER 12 HOURS OF FIRST DOSE)
     Route: 048
     Dates: start: 20180420, end: 20180421
  3. ALBENZA [Suspect]
     Active Substance: ALBENDAZOLE
     Indication: PRODUCT USE IN UNAPPROVED INDICATION
     Dosage: 200 MG, (ONE TABLET TWICE A DAY FOR 1 DAY)
     Route: 048
     Dates: start: 20180406, end: 20180406

REACTIONS (1)
  - Drug ineffective for unapproved indication [Unknown]
